FAERS Safety Report 4360559-X (Version None)
Quarter: 2004Q2

REPORT INFORMATION
  Report Type: 
  Country: None (occurrence: None)
  Receive Date: 20040519
  Receipt Date: 20040312
  Transmission Date: 20050107
  Serious: Yes (Hospitalization)
  Sender: FDA-Public Use
  Company Number: US-ROCHE-361521

PATIENT
  Age: 47 Year
  Sex: Male
  Weight: 85.7 kg

DRUGS (2)
  1. PEGASYS [Suspect]
     Dosage: ROUTE OF ADMINISTRATION REPORTED AS INJECTION.
     Route: 050
     Dates: start: 20040204, end: 20040210
  2. COPEGUS [Suspect]
     Dosage: ADMINISTERED AS 3 Q A.M. AND 3 Q P.M.
     Route: 048
     Dates: start: 20040204, end: 20040210

REACTIONS (1)
  - CELLULITIS [None]
